FAERS Safety Report 7658842-5 (Version None)
Quarter: 2011Q3

REPORT INFORMATION
  Report Type: 
  Country: None (occurrence: None)
  Receive Date: 20110805
  Receipt Date: 20110802
  Transmission Date: 20111222
  Serious: Yes (Other)
  Sender: FDA-Public Use
  Company Number: CO-PFIZER INC-2011177300

PATIENT
  Age: 84 Year
  Sex: Male

DRUGS (1)
  1. MEDROL [Suspect]
     Indication: PSORIASIS
     Dosage: 4 MG, 1X/DAY
     Route: 048
     Dates: start: 19910101

REACTIONS (1)
  - BONE DISORDER [None]
